FAERS Safety Report 7013716-8 (Version None)
Quarter: 2010Q3

REPORT INFORMATION
  Report Type: 
  Country: None (occurrence: None)
  Receive Date: 20100924
  Receipt Date: 20100920
  Transmission Date: 20110219
  Serious: Yes (Hospitalization, Other)
  Sender: FDA-Public Use
  Company Number: US-TEVA-246006USA

PATIENT
  Sex: Female

DRUGS (13)
  1. ZIAC [Suspect]
  2. LORATADINE [Suspect]
     Indication: MULTIPLE ALLERGIES
     Dosage: SOMETIMES EVERY 48 OR 72 HOURS
     Dates: start: 20100201, end: 20100201
  3. LORATADINE [Suspect]
     Indication: LACRIMATION INCREASED
  4. LORATADINE [Suspect]
     Indication: RHINORRHOEA
  5. LORATADINE [Suspect]
     Indication: SNEEZING
  6. RITUXIMAB [Suspect]
  7. ROPINIROLE HYDROCHLORIDE [Concomitant]
  8. IMMUNOGLOBULIN HUMAN ANTI-RH [Concomitant]
  9. PREDNISONE TAB [Concomitant]
  10. MOMETASONE FUROATE [Concomitant]
  11. CALCIUM CARBONATE [Concomitant]
  12. DEXAMETHASONE [Concomitant]
  13. STALEVO 100 [Concomitant]

REACTIONS (3)
  - ANGIOPATHY [None]
  - AUTOIMMUNE THROMBOCYTOPENIA [None]
  - PLATELET COUNT DECREASED [None]
